FAERS Safety Report 6211381-0 (Version None)
Quarter: 2009Q2

REPORT INFORMATION
  Report Type: 
  Country: None (occurrence: None)
  Receive Date: 20090602
  Receipt Date: 20090526
  Transmission Date: 20091009
  Serious: Yes (Hospitalization, Other)
  Sender: FDA-Public Use
  Company Number: IT-JNJFOC-20090504805

PATIENT
  Age: 45 Year
  Sex: Female

DRUGS (2)
  1. RISPERIDONE [Suspect]
     Route: 065
  2. RISPERIDONE [Suspect]
     Indication: SCHIZOAFFECTIVE DISORDER
     Route: 065

REACTIONS (6)
  - CONVULSION [None]
  - HEPATIC FUNCTION ABNORMAL [None]
  - HYPONATRAEMIA [None]
  - NEUROLEPTIC MALIGNANT SYNDROME [None]
  - POLYDIPSIA [None]
  - SCHIZOPHRENIA [None]
